FAERS Safety Report 19463216 (Version 1)
Quarter: 2021Q2

REPORT INFORMATION
  Report Type: Report from Study
  Country: US (occurrence: US)
  Receive Date: 20210625
  Receipt Date: 20210625
  Transmission Date: 20210717
  Serious: Yes (Other)
  Sender: FDA-Public Use
  Company Number: US-ASTRAZENECA-2021A547003

PATIENT
  Sex: Female

DRUGS (8)
  1. VITAMIN D3 [Concomitant]
     Active Substance: CHOLECALCIFEROL
  2. TAGRISSO [Suspect]
     Active Substance: OSIMERTINIB
     Indication: NON-SMALL CELL LUNG CANCER
     Route: 048
     Dates: start: 20210308
  3. CALCIUM [Concomitant]
     Active Substance: CALCIUM
  4. TESSALON [Concomitant]
     Active Substance: BENZONATATE
  5. TAGRISSO [Suspect]
     Active Substance: OSIMERTINIB
     Indication: NON-SMALL CELL LUNG CANCER
     Dosage: STARTED THERAPY AGAIN
     Route: 048
  6. ALBUTEROL. [Concomitant]
     Active Substance: ALBUTEROL
  7. COUGH SYRUP [Concomitant]
     Active Substance: DEXTROMETHORPHAN HYDROBROMIDE\GUAIFENESIN
  8. TAGRISSO [Suspect]
     Active Substance: OSIMERTINIB
     Indication: NON-SMALL CELL LUNG CANCER
     Dosage: 40MG AND 80MG, TO ALTERNATE DAILY
     Route: 048

REACTIONS (5)
  - Chemical burn [Not Recovered/Not Resolved]
  - Rash [Unknown]
  - Malignant neoplasm progression [Recovered/Resolved]
  - Urticaria [Not Recovered/Not Resolved]
  - Renal failure [Not Recovered/Not Resolved]
